FAERS Safety Report 8058261-6 (Version None)
Quarter: 2012Q1

REPORT INFORMATION
  Report Type: 
  Country: None (occurrence: None)
  Receive Date: 20120112
  Receipt Date: 20120109
  Transmission Date: 20120608
  Serious: Yes (Life-Threatening)
  Sender: FDA-Public Use
  Company Number: 2011SP021235

PATIENT
  Age: 75 Year
  Sex: Female

DRUGS (1)
  1. REMERON [Suspect]
     Indication: BLUNTED AFFECT
     Dosage: 30 MG, QD, PO
     Route: 048
     Dates: start: 20101215, end: 20110221

REACTIONS (5)
  - RENAL FAILURE ACUTE [None]
  - WHITE BLOOD CELL COUNT DECREASED [None]
  - PNEUMONIA [None]
  - NEUTROPENIA [None]
  - SEPSIS [None]
